FAERS Safety Report 10078469 (Version 2)
Quarter: 2014Q4

REPORT INFORMATION
  Report Type: Spontaneous
  Country: US (occurrence: None)
  Receive Date: 20140411
  Receipt Date: 20141219
  Transmission Date: 20150528
  Serious: Yes (Other)
  Sender: FDA-Public Use
  Company Number: 1713747-2014-99946

PATIENT
  Age: 41 Year
  Sex: Male
  Weight: 78 kg

DRUGS (3)
  1. LIBERTY CYCLER CASSETTE [Concomitant]
     Active Substance: DEVICE
  2. DELFLEX [Suspect]
     Active Substance: CALCIUM CHLORIDE\DEXTROSE MONOHYDRATE\MAGNESIUM CHLORIDE\SODIUM CHLORIDE\SODIUM LACTATE
     Indication: PERITONEAL DIALYSIS
     Dosage: DAILY , INTRA-PERITONEAL
     Route: 033
  3. LIBERTY CYCLER AND LIBERTY CYCLER CASSETTE [Concomitant]

REACTIONS (1)
  - Peritonitis [None]

NARRATIVE: CASE EVENT DATE: 20140104
